FAERS Safety Report 9303640 (Version 1)
Quarter: 2013Q2

REPORT INFORMATION
  Report Type: Spontaneous
  Country: US (occurrence: US)
  Receive Date: 20130522
  Receipt Date: 20130522
  Transmission Date: 20140414
  Serious: Yes (Death)
  Sender: FDA-Public Use
  Company Number: US-MYLANLABS-2013S1010559

PATIENT
  Age: 12 Year
  Sex: Female

DRUGS (1)
  1. FENTANYL TRANSDERMAL SYSTEM [Suspect]

REACTIONS (4)
  - Intentional drug misuse [Fatal]
  - Accidental overdose [Fatal]
  - Respiratory arrest [Fatal]
  - Drug interaction [Fatal]
